FAERS Safety Report 12563170 (Version 1)
Quarter: 2016Q3

REPORT INFORMATION
  Report Type: Spontaneous
  Country: GB (occurrence: GB)
  Receive Date: 20160715
  Receipt Date: 20160715
  Transmission Date: 20161109
  Serious: Yes (Hospitalization)
  Sender: FDA-Public Use
  Company Number: GB-ASTRAZENECA-2016SE74452

PATIENT
  Age: 53 Year
  Sex: Male

DRUGS (8)
  1. BECLOMETHASONE [Concomitant]
     Active Substance: BECLOMETHASONE
     Route: 055
  2. VITAMIN B COMPOUND STRONG [Concomitant]
     Route: 048
  3. PREGABALIN. [Concomitant]
     Active Substance: PREGABALIN
     Route: 048
  4. SALBUTAMOL [Concomitant]
     Active Substance: ALBUTEROL
     Route: 055
  5. THIAMINE. [Concomitant]
     Active Substance: THIAMINE
     Route: 048
  6. CARBAMAZEPINE. [Concomitant]
     Active Substance: CARBAMAZEPINE
     Route: 048
  7. ASPIRIN. [Concomitant]
     Active Substance: ASPIRIN
     Route: 048
  8. ESOMEPRAZOLE [Suspect]
     Active Substance: ESOMEPRAZOLE
     Route: 048
     Dates: end: 20160519

REACTIONS (2)
  - Fall [Unknown]
  - Hyponatraemia [Recovered/Resolved]
